FAERS Safety Report 26199607 (Version 1)
Quarter: 2025Q4

REPORT INFORMATION
  Report Type: Report from Study
  Country: ZA (occurrence: ZA)
  Receive Date: 20251225
  Receipt Date: 20251225
  Transmission Date: 20260118
  Serious: Yes (Hospitalization, Other)
  Sender: ABBVIE
  Company Number: ZA-ABBVIE-6603402

PATIENT
  Sex: Female

DRUGS (2)
  1. BOTOX [Suspect]
     Active Substance: ONABOTULINUMTOXINA
     Indication: Trigeminal neuralgia
     Dosage: TIME INTERVAL: AS NECESSARY: 50 UNITS EVERY 3 MONTHS
     Route: 065
  2. BOTOX [Suspect]
     Active Substance: ONABOTULINUMTOXINA
     Indication: Trigeminal neuralgia
     Dosage: TIME INTERVAL: AS NECESSARY
     Route: 065

REACTIONS (2)
  - Lung disorder [Unknown]
  - Neoplasm malignant [Unknown]
